FAERS Safety Report 25785635 (Version 1)
Quarter: 2025Q3

REPORT INFORMATION
  Report Type: Spontaneous
  Country: JP (occurrence: JP)
  Receive Date: 20250910
  Receipt Date: 20250910
  Transmission Date: 20251020
  Serious: Yes (Hospitalization)
  Sender: MYLAN
  Company Number: JP-VIATRISJAPAN-2025M1075964AA

PATIENT
  Sex: Female

DRUGS (2)
  1. ANHIBA [Suspect]
     Active Substance: ACETAMINOPHEN
     Indication: Pyrexia
  2. CEFCAPENE PIVOXIL [Concomitant]
     Active Substance: CEFCAPENE PIVOXIL
     Indication: Viral upper respiratory tract infection

REACTIONS (1)
  - Haemolysis [Recovered/Resolved]
